FAERS Safety Report 5745132-0 (Version None)
Quarter: 2008Q2

REPORT INFORMATION
  Report Type: 
  Country: None (occurrence: None)
  Receive Date: 20080521
  Receipt Date: 20080516
  Transmission Date: 20081010
  Serious: Yes (Other)
  Sender: FDA-Public Use
  Company Number: JP-AVENTIS-200811525JP

PATIENT

DRUGS (3)
  1. ALLEGRA [Suspect]
     Route: 048
  2. ONON [Suspect]
  3. CLARITHROMYCIN [Concomitant]

REACTIONS (1)
  - WHITE BLOOD CELL COUNT DECREASED [None]
